FAERS Safety Report 25058115 (Version 1)
Quarter: 2025Q1

REPORT INFORMATION
  Report Type: Spontaneous
  Country: CN (occurrence: CN)
  Receive Date: 20250310
  Receipt Date: 20250310
  Transmission Date: 20250409
  Serious: Yes (Hospitalization)
  Sender: MACLEODS
  Company Number: CN-MACLEODS PHARMA-MAC2025052066

PATIENT

DRUGS (2)
  1. LEVOTHYROXINE [Suspect]
     Active Substance: LEVOTHYROXINE
     Indication: Hypothyroidism
     Route: 065
  2. TRAMADOL [Concomitant]
     Active Substance: TRAMADOL
     Route: 030

REACTIONS (6)
  - Epilepsy [Recovered/Resolved]
  - Tachypnoea [Recovered/Resolved]
  - Mental disorder [Recovered/Resolved]
  - Chills [Recovered/Resolved]
  - Suicide attempt [Unknown]
  - Intentional overdose [Unknown]
